FAERS Safety Report 5881321-2 (Version None)
Quarter: 2008Q3

REPORT INFORMATION
  Report Type: 
  Country: None (occurrence: None)
  Receive Date: 20080912
  Receipt Date: 20080623
  Transmission Date: 20090109
  Serious: No
  Sender: FDA-Public Use
  Company Number: US-ABBOTT-08P-163-0459783-00

PATIENT
  Sex: Female
  Weight: 62.652 kg

DRUGS (17)
  1. HUMIRA [Suspect]
     Indication: RHEUMATOID ARTHRITIS
     Route: 058
     Dates: start: 20080606
  2. FEXOFENADINE [Concomitant]
     Indication: SEASONAL ALLERGY
     Route: 048
     Dates: start: 19980101
  3. FLUTICASONE PROPIONATE [Concomitant]
     Indication: SEASONAL ALLERGY
     Dosage: ONE SPRAY EACH NOSTRIL DAILY
     Route: 050
     Dates: start: 19980101
  4. ESOMEPRAZOLE MAGNESIUM [Concomitant]
     Indication: GASTROOESOPHAGEAL REFLUX DISEASE
     Route: 048
     Dates: start: 20040101
  5. SUCRALFATE [Concomitant]
     Indication: DYSPEPSIA
     Route: 048
     Dates: start: 20080101
  6. ALPRAZOLAM [Concomitant]
     Indication: ANXIETY
     Route: 048
     Dates: start: 19980101
  7. SERTRALINE [Concomitant]
     Indication: DEPRESSION
     Route: 048
     Dates: start: 20060101
  8. ESTROGENS CONJUGATED [Concomitant]
     Indication: HYSTERECTOMY
     Route: 048
     Dates: start: 20060101
  9. EMITREX [Concomitant]
     Indication: MIGRAINE
     Dosage: TAKES UP TO 9 TABS IN 30 DAYS
     Route: 048
     Dates: start: 20060101
  10. DOXEPIN HCL [Concomitant]
     Indication: SLEEP DISORDER THERAPY
     Route: 048
     Dates: start: 20040101
  11. PREDNISONE TAB [Concomitant]
     Indication: RHEUMATOID ARTHRITIS
     Route: 048
     Dates: start: 20080101
  12. ERGOCALCIFEROL [Concomitant]
     Indication: OSTEOPENIA
     Route: 048
  13. LEFLUNOMIDE [Concomitant]
     Indication: RHEUMATOID ARTHRITIS
     Route: 048
     Dates: start: 20080101
  14. LIBREX [Concomitant]
     Indication: IRRITABLE BOWEL SYNDROME
     Route: 048
     Dates: start: 20080501
  15. LOTREL [Concomitant]
     Indication: HYPERTENSION
     Dosage: UNIT: 5/10 MILLIGRAM
     Route: 048
  16. ACETAMINOPHEN [Concomitant]
     Indication: PAIN
     Dosage: 1 OR 2 AS NEEDED
     Route: 048
  17. HYDROCODONE BITARTRATE [Concomitant]
     Indication: PAIN
     Dosage: UNIT: 10/500 MILLIGRAMS
     Route: 048
     Dates: start: 20020101, end: 20080501

REACTIONS (2)
  - ABDOMINAL PAIN UPPER [None]
  - HUNGER [None]
